FAERS Safety Report 9774666 (Version 1)
Quarter: 2013Q4

REPORT INFORMATION
  Report Type: Report from Study
  Country: NL (occurrence: NL)
  Receive Date: 20131220
  Receipt Date: 20131220
  Transmission Date: 20140711
  Serious: Yes (Hospitalization)
  Sender: FDA-Public Use
  Company Number: NL-JNJFOC-20131208626

PATIENT
  Age: 70 Year
  Sex: Male

DRUGS (8)
  1. ABIRATERONE ACETATE [Suspect]
     Indication: PROSTATE CANCER
     Route: 048
     Dates: start: 20111202, end: 20120321
  2. METOPROLOL [Concomitant]
  3. PREDNISOLON [Concomitant]
  4. AUGMENTIN [Concomitant]
  5. TAMSULOSIN [Concomitant]
  6. ARTANE [Concomitant]
  7. MADOPAR [Concomitant]
  8. LACTULOSE [Concomitant]

REACTIONS (1)
  - Delirium [Unknown]
